FAERS Safety Report 6975875-2 (Version None)
Quarter: 2010Q3

REPORT INFORMATION
  Report Type: 
  Country: None (occurrence: None)
  Receive Date: 20100910
  Receipt Date: 20100830
  Transmission Date: 20110219
  Serious: Yes (Hospitalization)
  Sender: FDA-Public Use
  Company Number: CA-SANOFI-AVENTIS-2010SA051832

PATIENT
  Age: 70 Year
  Sex: Female
  Weight: 68 kg

DRUGS (8)
  1. BLINDED THERAPY [Suspect]
     Route: 048
     Dates: start: 20100718, end: 20100722
  2. DRONEDARONE HCL [Suspect]
     Route: 048
     Dates: start: 20100723, end: 20100828
  3. WARFARIN [Concomitant]
  4. ATORVASTATIN [Concomitant]
  5. ALTACE [Concomitant]
  6. LASIX [Concomitant]
  7. LEVOTHYROXINE SODIUM [Concomitant]
  8. CALCIUM CHANNEL BLOCKERS [Concomitant]

REACTIONS (1)
  - SYNCOPE [None]
